FAERS Safety Report 6669837-2 (Version None)
Quarter: 2010Q2

REPORT INFORMATION
  Report Type: 
  Country: None (occurrence: None)
  Receive Date: 20100406
  Receipt Date: 20100112
  Transmission Date: 20101027
  Serious: No
  Sender: FDA-Public Use
  Company Number: US-ALLERGAN-0909022US

PATIENT
  Age: 62 Year
  Sex: Female

DRUGS (14)
  1. LATISSE [Suspect]
     Indication: DRUG USE FOR UNKNOWN INDICATION
     Dosage: 1 GTT, QHS
     Route: 061
  2. LABETALOL HCL [Concomitant]
     Dosage: 300 MG, UNK
  3. K-DUR [Concomitant]
     Dosage: UNK, BID
  4. LEVOTHYROXINE SODIUM [Concomitant]
     Indication: HYPOTHYROIDISM
     Dosage: 90 UG, UNK
  5. LEVOTHYROXINE SODIUM [Concomitant]
     Dosage: 175 UG, UNK
  6. PLAVIX [Concomitant]
     Dosage: UNK, QD
  7. NORTRIPTYLINE HCL [Concomitant]
     Dosage: 25 MG, QD
  8. KLONOPIN [Concomitant]
     Dosage: 0.5 MG, QD
  9. ALLEGRA [Concomitant]
     Dosage: 60 MG, QD
  10. HORMONES NOS [Concomitant]
     Dosage: PATCH
  11. PREVACID [Concomitant]
     Dosage: 30 MG, BID
  12. ADVAIR DISKUS 100/50 [Concomitant]
     Dosage: 50/250
  13. TRIMIPRAMINE [Concomitant]
     Dosage: 37.5 MG, QD
  14. AVALIDE [Concomitant]

REACTIONS (2)
  - EYE DISCHARGE [None]
  - MADAROSIS [None]
